FAERS Safety Report 5859419-4 (Version None)
Quarter: 2008Q3

REPORT INFORMATION
  Report Type: 
  Country: None (occurrence: None)
  Receive Date: 20080827
  Receipt Date: 20080818
  Transmission Date: 20090109
  Serious: Yes (Other)
  Sender: FDA-Public Use
  Company Number: GB-AMGEN-US296129

PATIENT
  Sex: Female

DRUGS (2)
  1. ENBREL [Suspect]
     Indication: RHEUMATOID ARTHRITIS
     Dosage: LYOPHILIZED: 50 MG, FREQUENCY UNKNOWN
     Route: 058
     Dates: start: 20040101
  2. PREDNISOLONE [Concomitant]
     Route: 065

REACTIONS (10)
  - ARTHRALGIA [None]
  - CONDITION AGGRAVATED [None]
  - INJECTION SITE DISCOMFORT [None]
  - INJECTION SITE PAIN [None]
  - JOINT SWELLING [None]
  - KNEE ARTHROPLASTY [None]
  - MUSCULOSKELETAL STIFFNESS [None]
  - PAIN [None]
  - PHARMACEUTICAL PRODUCT COMPLAINT [None]
  - RHEUMATOID ARTHRITIS [None]
